FAERS Safety Report 9783458 (Version 2)
Quarter: 2014Q2

REPORT INFORMATION
  Report Type: Spontaneous
  Country: US (occurrence: US)
  Receive Date: 20131226
  Receipt Date: 20140502
  Transmission Date: 20141212
  Serious: Yes (Other)
  Sender: FDA-Public Use
  Company Number: US-PFIZER INC-2013368533

PATIENT
  Age: 58 Year
  Sex: Male
  Weight: 78.01 kg

DRUGS (1)
  1. LYRICA [Suspect]
     Indication: BURNING SENSATION
     Dosage: 75 MG, 2X/DAY
     Route: 048

REACTIONS (1)
  - Accident at work [Unknown]
